FAERS Safety Report 22084053 (Version 1)
Quarter: 2023Q1

REPORT INFORMATION
  Report Type: Spontaneous
  Country: US (occurrence: US)
  Receive Date: 20230310
  Receipt Date: 20230310
  Transmission Date: 20230418
  Serious: No
  Sender: FDA-Public Use
  Company Number: US-BRISTOL-MYERS SQUIBB COMPANY-2023-033182

PATIENT
  Age: 69 Year
  Sex: Female

DRUGS (1)
  1. POMALYST [Suspect]
     Active Substance: POMALIDOMIDE
     Indication: Plasma cell myeloma
     Dosage: FREQUENCY:TAKE 1 CAPSULE BY MOUTH EVERY DAY ON DAYS 1-14 OF A 21 DAY CYCLE
     Route: 048

REACTIONS (2)
  - Intracardiac mass [Unknown]
  - Off label use [Unknown]
